FAERS Safety Report 20147605 (Version 3)
Quarter: 2025Q2

REPORT INFORMATION
  Report Type: Spontaneous
  Country: US (occurrence: US)
  Receive Date: 20211203
  Receipt Date: 20250418
  Transmission Date: 20250716
  Serious: No
  Sender: SANOFI AVENTIS
  Company Number: US-SA-SAC20211129000093

PATIENT
  Age: 54 Year
  Sex: Female
  Weight: 83.492 kg

DRUGS (9)
  1. DUPIXENT [Suspect]
     Active Substance: DUPILUMAB
     Indication: Dermatitis atopic
     Dosage: 300 MG, QOW
     Route: 058
  2. DUPIXENT [Suspect]
     Active Substance: DUPILUMAB
     Indication: Eczema
  3. MODERNA COVID-19 VACCINE [Concomitant]
     Active Substance: ELASOMERAN
  4. AMOXICILLIN [Concomitant]
     Active Substance: AMOXICILLIN
  5. IBUPROFEN [Concomitant]
     Active Substance: IBUPROFEN
  6. CHLORHEXIDINE [Concomitant]
     Active Substance: CHLORHEXIDINE
  7. ACETAMINOPHEN [Concomitant]
     Active Substance: ACETAMINOPHEN
  8. CODEINE [Concomitant]
     Active Substance: CODEINE
  9. HYDROCORTISONE\NEOMYCIN\POLYMYXIN B [Concomitant]
     Active Substance: HYDROCORTISONE\NEOMYCIN\POLYMYXIN B

REACTIONS (2)
  - COVID-19 [Unknown]
  - Injection site pain [Unknown]
